FAERS Safety Report 6941332-2 (Version None)
Quarter: 2010Q3

REPORT INFORMATION
  Report Type: 
  Country: None (occurrence: None)
  Receive Date: 20100825
  Receipt Date: 20100816
  Transmission Date: 20110219
  Serious: Yes (Death, Other)
  Sender: FDA-Public Use
  Company Number: US-TEVA-244943USA

PATIENT
  Age: 18 Year
  Sex: Male

DRUGS (2)
  1. MERCAPTOPURINE [Suspect]
     Indication: CROHN'S DISEASE
     Dosage: ALTERNATING
  2. MERCAPTOPURINE [Suspect]
     Dosage: ALTERNATING

REACTIONS (1)
  - HEPATOSPLENIC T-CELL LYMPHOMA [None]
